FAERS Safety Report 14109633 (Version 2)
Quarter: 2017Q4

REPORT INFORMATION
  Report Type: Report from Study
  Country: None (occurrence: IT)
  Receive Date: 20171020
  Receipt Date: 20171109
  Transmission Date: 20180321
  Serious: Yes (Death, Hospitalization)
  Sender: FDA-Public Use
  Company Number: IT-ABBVIE-17K-083-2137057-00

PATIENT
  Age: 80 Year
  Sex: Male

DRUGS (1)
  1. DUODOPA [Suspect]
     Active Substance: CARBIDOPA\LEVODOPA
     Indication: PARKINSON^S DISEASE
     Dosage: MD 5+3 CR 1,3, ED 2
     Route: 050
     Dates: start: 20160202, end: 20171019

REACTIONS (2)
  - Respiratory failure [Fatal]
  - Coma [Fatal]

NARRATIVE: CASE EVENT DATE: 201710
